FAERS Safety Report 9331155 (Version 1)
Quarter: 2013Q2

REPORT INFORMATION
  Report Type: Spontaneous
  Country: US (occurrence: US)
  Receive Date: 20130605
  Receipt Date: 20130605
  Transmission Date: 20140414
  Serious: Yes (Hospitalization, Other)
  Sender: FDA-Public Use
  Company Number: PHHY2013US054620

PATIENT
  Age: 56 Year
  Sex: Female
  Weight: 73.8 kg

DRUGS (6)
  1. METFORMIN [Suspect]
     Indication: TYPE 2 DIABETES MELLITUS
  2. GLIMEPIRIDE [Concomitant]
  3. SODIUM CITRATE DIHYDRATE [Concomitant]
  4. MAGNESIUM PHOSPHATE [Concomitant]
  5. NAPROXEN [Concomitant]
  6. AMILORIDE [Concomitant]

REACTIONS (19)
  - Chest pain [Unknown]
  - Oropharyngeal discomfort [Unknown]
  - Chest discomfort [Unknown]
  - Epigastric discomfort [Unknown]
  - Hyperglycaemia [Unknown]
  - Diabetes mellitus inadequate control [Unknown]
  - Pancreatic atrophy [Unknown]
  - Renal cyst [Unknown]
  - Hepatic steatosis [Unknown]
  - Dysgeusia [Unknown]
  - Headache [Unknown]
  - Dyspepsia [Unknown]
  - Sleep disorder [Unknown]
  - Abdominal distension [Unknown]
  - Oropharyngeal pain [Unknown]
  - Malaise [Unknown]
  - Oedema peripheral [Unknown]
  - Gastrointestinal motility disorder [Unknown]
  - Nausea [Unknown]
